FAERS Safety Report 4434333-X (Version None)
Quarter: 2004Q3

REPORT INFORMATION
  Report Type: 
  Country: None (occurrence: None)
  Receive Date: 20040825
  Receipt Date: 20040809
  Transmission Date: 20050211
  Serious: Yes (Hospitalization)
  Sender: FDA-Public Use
  Company Number: DE-2004-028167

PATIENT
  Sex: Female

DRUGS (4)
  1. BETAFERON [Suspect]
     Dosage: SUBCUTANEOUS
     Route: 058
     Dates: start: 20040615
  2. IBUPROFEN [Concomitant]
  3. MULTIVITAMINS PLAIN [Concomitant]
  4. LIORESAL [Concomitant]

REACTIONS (3)
  - DYSAESTHESIA [None]
  - INFLUENZA LIKE ILLNESS [None]
  - MUSCLE SPASTICITY [None]
